FAERS Safety Report 5123493-3 (Version None)
Quarter: 2006Q4

REPORT INFORMATION
  Report Type: 
  Country: None (occurrence: None)
  Receive Date: 20061009
  Receipt Date: 20061004
  Transmission Date: 20070319
  Serious: Yes (Hospitalization)
  Sender: FDA-Public Use
  Company Number: US-MERCK-0610USA03503

PATIENT
  Age: 90 Year
  Sex: Female

DRUGS (4)
  1. SINGULAIR [Suspect]
     Indication: ASTHMA
     Route: 048
     Dates: start: 19960101
  2. ADVAIR DISKUS 100/50 [Concomitant]
     Route: 065
  3. COUMADIN [Concomitant]
     Route: 065
  4. ULTRACET [Concomitant]
     Route: 065

REACTIONS (1)
  - ASTHMA [None]
